FAERS Safety Report 7531411-3 (Version None)
Quarter: 2011Q2

REPORT INFORMATION
  Report Type: 
  Country: None (occurrence: None)
  Receive Date: 20110608
  Receipt Date: 20110525
  Transmission Date: 20111010
  Serious: Yes (Other)
  Sender: FDA-Public Use
  Company Number: PHHY2011DE46282

PATIENT
  Sex: Male

DRUGS (2)
  1. RASILEZ [Suspect]
     Dosage: 150 MG/ DAY
     Dates: start: 20110503, end: 20110505
  2. RASILEZ [Suspect]
     Dosage: 150 MG, UNK
     Dates: start: 20110507

REACTIONS (4)
  - CIRCULATORY COLLAPSE [None]
  - HYPERHIDROSIS [None]
  - CORONARY ARTERY DISEASE [None]
  - TACHYCARDIA [None]
